FAERS Safety Report 4708265-3 (Version None)
Quarter: 2005Q3

REPORT INFORMATION
  Report Type: 
  Country: None (occurrence: None)
  Receive Date: 20050707
  Receipt Date: 20050628
  Transmission Date: 20060218
  Serious: Yes (Hospitalization)
  Sender: FDA-Public Use
  Company Number: AU-GLAXOSMITHKLINE-B0386254A

PATIENT
  Sex: Female

DRUGS (1)
  1. PANADOL RAPID [Suspect]
     Route: 048
     Dates: start: 20050628

REACTIONS (1)
  - INTENTIONAL MISUSE [None]
